FAERS Safety Report 18338586 (Version 1)
Quarter: 2020Q3

REPORT INFORMATION
  Report Type: Spontaneous
  Country: US (occurrence: US)
  Receive Date: 20200930
  Receipt Date: 20200930
  Transmission Date: 20201103
  Serious: No
  Sender: FDA-Public Use
  Company Number: None

PATIENT
  Age: 75 Year
  Sex: Male

DRUGS (1)
  1. ROSUVASTATIN (ROSUVASTATIN CA 10MG TAB) [Suspect]
     Active Substance: ROSUVASTATIN
     Indication: HYPERLIPIDAEMIA
     Route: 048
     Dates: start: 20200603, end: 20200824

REACTIONS (1)
  - Dry mouth [None]

NARRATIVE: CASE EVENT DATE: 20200707
